FAERS Safety Report 9301683 (Version 1)
Quarter: 2013Q2

REPORT INFORMATION
  Report Type: Report from Study
  Country: US (occurrence: US)
  Receive Date: 20130521
  Receipt Date: 20130521
  Transmission Date: 20140414
  Serious: Yes (Hospitalization)
  Sender: FDA-Public Use
  Company Number: US-ACTELION-A-US2013-83267

PATIENT
  Age: 2 Year
  Sex: Male

DRUGS (4)
  1. TRACLEER [Suspect]
     Indication: COR PULMONALE CHRONIC
     Dosage: UNK
     Route: 048
  2. ADCIRCA [Concomitant]
  3. FLOLAN [Concomitant]
  4. REMODULIN [Concomitant]

REACTIONS (2)
  - Central venous catheterisation [Unknown]
  - Dyspnoea [Unknown]
